FAERS Safety Report 6782816-X (Version None)
Quarter: 2010Q2

REPORT INFORMATION
  Report Type: 
  Country: None (occurrence: None)
  Receive Date: 20100616
  Receipt Date: 20100601
  Transmission Date: 20101027
  Serious: Yes (Life-Threatening, Hospitalization, Other)
  Sender: FDA-Public Use
  Company Number: 2010SCPR001184

PATIENT
  Age: 49 Year
  Sex: Male

DRUGS (4)
  1. VERAPAMIL [Suspect]
     Indication: DRUG USE FOR UNKNOWN INDICATION
     Dosage: ORAL
     Route: 048
  2. DIAZEPAM [Suspect]
     Indication: DRUG USE FOR UNKNOWN INDICATION
     Dosage: 50 X 5MG, ORAL
     Route: 048
  3. TRAMADOL HCL [Suspect]
     Indication: DRUG USE FOR UNKNOWN INDICATION
     Dosage: 15 X 200MG, ORAL
     Route: 048
  4. MORPHINE [Suspect]
     Indication: DRUG USE FOR UNKNOWN INDICATION
     Dosage: 20 X 30MG, ORAL
     Route: 048

REACTIONS (13)
  - ASTHENIA [None]
  - ATAXIA [None]
  - BLOOD MAGNESIUM DECREASED [None]
  - BLOOD POTASSIUM DECREASED [None]
  - CARDIAC INDEX INCREASED [None]
  - DISORIENTATION [None]
  - DRUG TOXICITY [None]
  - DYSARTHRIA [None]
  - HYPOTENSION [None]
  - MULTIPLE DRUG OVERDOSE INTENTIONAL [None]
  - NODAL RHYTHM [None]
  - SOMNOLENCE [None]
  - VASCULAR RESISTANCE SYSTEMIC DECREASED [None]
